FAERS Safety Report 21662247 (Version 1)
Quarter: 2022Q4

REPORT INFORMATION
  Report Type: Report from Study
  Country: KW (occurrence: KW)
  Receive Date: 20221130
  Receipt Date: 20221130
  Transmission Date: 20230113
  Serious: Yes (Other)
  Sender: FDA-Public Use
  Company Number: KW-002147023-NVSC2022KW275281

PATIENT
  Age: 3 Year

DRUGS (2)
  1. ZOLGENSMA [Suspect]
     Active Substance: ONASEMNOGENE ABEPARVOVEC-XIOI
     Indication: Spinal muscular atrophy
     Dosage: UNK, ONCE/SINGLE
     Route: 042
     Dates: start: 20191105
  2. NUSINERSEN [Concomitant]
     Active Substance: NUSINERSEN
     Indication: Product used for unknown indication
     Dosage: UNK (4 DOSES)
     Route: 065

REACTIONS (3)
  - Leukopenia [Recovered/Resolved]
  - Hepatic enzyme increased [Recovered/Resolved]
  - Troponin increased [Unknown]
